FAERS Safety Report 17772510 (Version 1)
Quarter: 2020Q2

REPORT INFORMATION
  Report Type: Spontaneous
  Country: IT (occurrence: IT)
  Receive Date: 20200512
  Receipt Date: 20200512
  Transmission Date: 20200714
  Serious: Yes (Hospitalization)
  Sender: FDA-Public Use
  Company Number: IT-AMNEAL PHARMACEUTICALS-2020-AMRX-01343

PATIENT
  Age: 60 Year
  Sex: Female
  Weight: 79 kg

DRUGS (6)
  1. FULVESTRANT. [Suspect]
     Active Substance: FULVESTRANT
     Indication: METASTASES TO LYMPH NODES
     Dosage: 500 FL
     Route: 030
     Dates: start: 20200303, end: 20200303
  2. ABEMACICLIB [Suspect]
     Active Substance: ABEMACICLIB
     Indication: BREAST CANCER METASTATIC
     Dosage: 150 MILLIGRAM, BID
     Route: 048
     Dates: start: 20200219, end: 20200303
  3. ABEMACICLIB [Suspect]
     Active Substance: ABEMACICLIB
     Indication: METASTASES TO BONE
  4. ABEMACICLIB [Suspect]
     Active Substance: ABEMACICLIB
     Indication: METASTASES TO LYMPH NODES
  5. FULVESTRANT. [Suspect]
     Active Substance: FULVESTRANT
     Indication: BREAST CANCER METASTATIC
     Dosage: 500 FL
     Route: 030
     Dates: start: 20200217, end: 20200217
  6. FULVESTRANT. [Suspect]
     Active Substance: FULVESTRANT
     Indication: METASTASES TO BONE

REACTIONS (1)
  - COVID-19 pneumonia [Recovered/Resolved]

NARRATIVE: CASE EVENT DATE: 202003
